FAERS Safety Report 6297881-6 (Version None)
Quarter: 2009Q3

REPORT INFORMATION
  Report Type: 
  Country: None (occurrence: None)
  Receive Date: 20090805
  Receipt Date: 20090723
  Transmission Date: 20100115
  Serious: Yes (Other)
  Sender: FDA-Public Use
  Company Number: MX-ELI_LILLY_AND_COMPANY-MX200907005342

PATIENT
  Age: 55 Year
  Sex: Male
  Weight: 90 kg

DRUGS (6)
  1. BYETTA [Suspect]
     Indication: TYPE 2 DIABETES MELLITUS
     Dosage: 5 UG, UNKNOWN
     Route: 058
     Dates: start: 20090312, end: 20090714
  2. ZACTOS [Concomitant]
     Dosage: 15 MG, UNKNOWN
     Route: 065
     Dates: end: 20090612
  3. LANTUS [Concomitant]
     Dosage: 44 IU, EACH EVENING
     Route: 065
  4. AMARYL [Concomitant]
     Dosage: 4 MG, UNKNOWN
     Route: 065
  5. LYRICA [Concomitant]
     Dosage: UNK, UNKNOWN
     Route: 065
  6. GLIMEPIRIDE [Concomitant]
     Dosage: UNK, UNKNOWN
     Route: 065

REACTIONS (2)
  - OFF LABEL USE [None]
  - PANCREATITIS [None]
